FAERS Safety Report 17134935 (Version 1)
Quarter: 2019Q4

REPORT INFORMATION
  Report Type: Spontaneous
  Country: CN (occurrence: CN)
  Receive Date: 20191210
  Receipt Date: 20191210
  Transmission Date: 20200122
  Serious: Yes (Other)
  Sender: FDA-Public Use
  Company Number: CN-PFIZER INC-2019529299

PATIENT
  Age: 51 Year
  Sex: Female

DRUGS (1)
  1. CYTOSAR [Suspect]
     Active Substance: CYTARABINE
     Dosage: 4.800 G, EVERY 12 HOURS
     Route: 041
     Dates: start: 20190920, end: 20190920

REACTIONS (2)
  - Rash [Recovering/Resolving]
  - Hepatic failure [Recovering/Resolving]

NARRATIVE: CASE EVENT DATE: 20190920
